FAERS Safety Report 9128242 (Version 1)
Quarter: 2013Q1

REPORT INFORMATION
  Report Type: Spontaneous
  Country: US (occurrence: US)
  Receive Date: 20130125
  Receipt Date: 20130125
  Transmission Date: 20140127
  Serious: Yes (Other)
  Sender: FDA-Public Use
  Company Number: US-TEVA-382437USA

PATIENT
  Sex: Female

DRUGS (1)
  1. CLARAVIS [Suspect]
     Dates: end: 20121025

REACTIONS (4)
  - Self injurious behaviour [Unknown]
  - Skin discolouration [Unknown]
  - Feeling abnormal [Unknown]
  - Emotional distress [Unknown]
